FAERS Safety Report 11761708 (Version 1)
Quarter: 2015Q4

REPORT INFORMATION
  Report Type: Spontaneous
  Country: FR (occurrence: FR)
  Receive Date: 20151120
  Receipt Date: 20151120
  Transmission Date: 20160304
  Serious: Yes (Hospitalization)
  Sender: FDA-Public Use
  Company Number: FR-GE HEALTHCARE MEDICAL DIAGNOSTICS-VISP-NO-0607S-0482

PATIENT
  Age: 45 Year
  Sex: Female

DRUGS (15)
  1. MORPHINE [Concomitant]
     Active Substance: MORPHINE
     Dates: start: 20060619, end: 20060620
  2. CLORAZEPATE DIPOTASSIUM (TRANXENE) [Concomitant]
     Dates: start: 20060621, end: 20060623
  3. NIMOTOP [Suspect]
     Active Substance: NIMODIPINE
     Route: 042
     Dates: start: 20060619, end: 20060624
  4. PROPOFOL (DIPRIVAN) [Concomitant]
     Dates: start: 20060619
  5. HEPARIN (HEPARINE) [Suspect]
     Active Substance: HEPARIN SODIUM
     Dates: start: 20060619, end: 20060621
  6. ONDANSETRON HYDROCHLORIDE (ZOPHREN) [Concomitant]
     Dates: start: 20060620, end: 20060622
  7. MANNITOL. [Concomitant]
     Active Substance: MANNITOL
     Dates: start: 20060621
  8. VISIPAQUE [Suspect]
     Active Substance: IODIXANOL
     Indication: DEPRESSED LEVEL OF CONSCIOUSNESS
     Route: 042
     Dates: start: 20060619, end: 20060619
  9. VISIPAQUE [Suspect]
     Active Substance: IODIXANOL
     Route: 042
  10. IOMERON [Suspect]
     Active Substance: IOMEPROL
     Route: 042
     Dates: start: 20060619, end: 20060619
  11. DANAPAROID SODIUM (ORGARAN) [Concomitant]
     Dates: start: 20060624, end: 20060703
  12. VALPROATE SODIUM (DEPAKINE) [Suspect]
     Active Substance: VALPROIC ACID
     Route: 042
     Dates: start: 20060619, end: 20060623
  13. HEPARIN-FRACTION, SODIUM SALT (LOVENOX) [Concomitant]
     Dates: start: 20060621, end: 20060623
  14. OMEPRAZOLE (MOPRAL) [Concomitant]
     Dates: start: 20060619, end: 20060621
  15. CERNEVIT [Concomitant]
     Active Substance: VITAMINS
     Dates: start: 20060619, end: 20060621

REACTIONS (1)
  - Acute generalised exanthematous pustulosis [Unknown]

NARRATIVE: CASE EVENT DATE: 20060622
